FAERS Safety Report 12765928 (Version 1)
Quarter: 2016Q3

REPORT INFORMATION
  Report Type: Spontaneous
  Country: US (occurrence: US)
  Receive Date: 20160915
  Receipt Date: 20160915
  Transmission Date: 20161109
  Serious: No
  Sender: FDA-Public Use
  Company Number: None

PATIENT
  Sex: Female

DRUGS (1)
  1. HUMIRA [Suspect]
     Active Substance: ADALIMUMAB
     Indication: PSORIASIS
     Dosage: FROM 5/27/2016 TO 1 WEEK AGO
     Route: 058
     Dates: start: 20160527

REACTIONS (3)
  - Rash [None]
  - Eyelid oedema [None]
  - Miliaria [None]
